FAERS Safety Report 13031390 (Version 1)
Quarter: 2016Q4

REPORT INFORMATION
  Report Type: Spontaneous
  Country: US (occurrence: US)
  Receive Date: 20161215
  Receipt Date: 20161215
  Transmission Date: 20170207
  Serious: Yes (Hospitalization)
  Sender: FDA-Public Use
  Company Number: US-AMGEN-USASP2016175636

PATIENT
  Age: 70 Year
  Sex: Female

DRUGS (1)
  1. NEULASTA [Suspect]
     Active Substance: PEGFILGRASTIM
     Indication: PRODUCT USED FOR UNKNOWN INDICATION
     Dosage: UNK
     Route: 065
     Dates: start: 20161117

REACTIONS (9)
  - Pyrexia [Unknown]
  - Tremor [Unknown]
  - Chills [Unknown]
  - Haemoglobin abnormal [Unknown]
  - Circumstance or information capable of leading to medication error [Unknown]
  - Confusional state [Unknown]
  - Malaise [Unknown]
  - Neutrophil count decreased [Unknown]
  - Feeling abnormal [Unknown]

NARRATIVE: CASE EVENT DATE: 201611
